FAERS Safety Report 13472835 (Version 2)
Quarter: 2017Q2

REPORT INFORMATION
  Report Type: Spontaneous
  Country: CH (occurrence: CH)
  Receive Date: 20170424
  Receipt Date: 20170503
  Transmission Date: 20170830
  Serious: Yes (Other)
  Sender: FDA-Public Use
  Company Number: CH-PFIZER INC-2017175851

PATIENT
  Age: 40 Year
  Sex: Female
  Weight: 76 kg

DRUGS (15)
  1. DOXORUBICIN HCL [Suspect]
     Active Substance: DOXORUBICIN HYDROCHLORIDE
     Indication: HODGKIN^S DISEASE NODULAR SCLEROSIS
     Dosage: 25 MG/M2, CYCLIC
     Route: 040
     Dates: start: 20160729
  2. SOLU-MEDROL [Suspect]
     Active Substance: METHYLPREDNISOLONE SODIUM SUCCINATE
     Indication: PROPHYLAXIS OF NAUSEA AND VOMITING
     Dosage: 125 MG, CYCLIC
     Route: 040
     Dates: start: 20160729, end: 20170106
  3. DACIN /00372801/ [Suspect]
     Active Substance: DACARBAZINE
     Dosage: 680 MG, CYCLIC
     Route: 040
     Dates: end: 20160923
  4. BLEOMYCIN [Suspect]
     Active Substance: BLEOMYCIN SULFATE
     Dosage: 18,000 IU, CYCLIC
     Route: 040
     Dates: end: 20170106
  5. DOXORUBICIN HCL [Suspect]
     Active Substance: DOXORUBICIN HYDROCHLORIDE
     Dosage: 45 MG, CYCLIC
     Route: 040
     Dates: end: 20170106
  6. BLEOMYCIN [Suspect]
     Active Substance: BLEOMYCIN SULFATE
     Indication: HODGKIN^S DISEASE NODULAR SCLEROSIS
     Dosage: 10 000 IU/M2, CYCLIC
     Route: 040
     Dates: start: 20160729
  7. VITAMIN B12 [Concomitant]
     Active Substance: CYANOCOBALAMIN
     Indication: ANAEMIA PROPHYLAXIS
     Dosage: UNK, WEEKLY
     Route: 045
     Dates: start: 201609, end: 201611
  8. VELBE [Suspect]
     Active Substance: VINBLASTINE SULFATE
     Indication: HODGKIN^S DISEASE NODULAR SCLEROSIS
     Dosage: 6MG/M2, CYCLIC
     Route: 040
     Dates: start: 20160729
  9. EUTHYROX [Concomitant]
     Active Substance: LEVOTHYROXINE SODIUM
     Indication: HYPOTHYROIDISM
     Dosage: 25 UG, DAILY
     Route: 048
     Dates: start: 20160624
  10. GYNEFAM XL [Concomitant]
     Indication: NUTRITIONAL SUPPLEMENTATION
     Dosage: 1 DF, 1X/DAY
     Route: 048
     Dates: start: 2016, end: 2016
  11. VELBE [Suspect]
     Active Substance: VINBLASTINE SULFATE
     Dosage: 11 MG, CYCLIC
     Route: 040
     Dates: end: 20170106
  12. DACIN /00372801/ [Suspect]
     Active Substance: DACARBAZINE
     Indication: HODGKIN^S DISEASE NODULAR SCLEROSIS
     Dosage: 375 MG/M2, CYCLIC
     Route: 040
     Dates: start: 20160729
  13. ZOFRAN [Suspect]
     Active Substance: ONDANSETRON HYDROCHLORIDE
     Indication: PROPHYLAXIS OF NAUSEA AND VOMITING
     Dosage: 8 MG, CYCLIC
     Route: 040
     Dates: start: 20160729, end: 20170106
  14. FOLIC ACID. [Concomitant]
     Active Substance: FOLIC ACID
     Indication: ANAEMIA PROPHYLAXIS
     Dosage: 5 MG, 1X/DAY
     Route: 048
     Dates: start: 201609, end: 201611
  15. DACIN /00372801/ [Suspect]
     Active Substance: DACARBAZINE
     Dosage: UNK
     Route: 040
     Dates: start: 20161216, end: 20170106

REACTIONS (2)
  - Neutropenia [Unknown]
  - Agranulocytosis [Unknown]
